FAERS Safety Report 9450605 (Version 1)
Quarter: 2013Q3

REPORT INFORMATION
  Report Type: Spontaneous
  Country: JP (occurrence: JP)
  Receive Date: 20130809
  Receipt Date: 20130809
  Transmission Date: 20140515
  Serious: Yes (Other)
  Sender: FDA-Public Use
  Company Number: JP-PFIZER INC-2013223926

PATIENT
  Age: 46 Year
  Sex: Female

DRUGS (1)
  1. PACLITAXEL [Suspect]
     Indication: BREAST CANCER
     Dosage: 120 MG, EVERY 14 DAYS
     Route: 042

REACTIONS (1)
  - Cutaneous lupus erythematosus [Recovered/Resolved]
